FAERS Safety Report 11108762 (Version 4)
Quarter: 2015Q2

REPORT INFORMATION
  Report Type: Spontaneous
  Country: US (occurrence: US)
  Receive Date: 20150513
  Receipt Date: 20150619
  Transmission Date: 20150821
  Serious: Yes (Other)
  Sender: FDA-Public Use
  Company Number: US-009507513-1505USA003498

PATIENT
  Sex: Female

DRUGS (2)
  1. IMPLANON [Suspect]
     Active Substance: ETONOGESTREL
     Dosage: FREQUENCY: ONGOING
     Route: 059
     Dates: start: 2012
  2. EPINEPHRINE (+) LIDOCAINE HYDROCHLORIDE [Suspect]
     Active Substance: EPINEPHRINE\LIDOCAINE HYDROCHLORIDE
     Indication: MEDICAL DEVICE REMOVAL
     Dosage: 1/2 CC, ONCE
     Dates: start: 20150507

REACTIONS (8)
  - Feeling hot [Unknown]
  - Discomfort [Recovering/Resolving]
  - Grip strength decreased [Recovering/Resolving]
  - Hypoaesthesia [Unknown]
  - Erythema [Unknown]
  - Ulnar nerve injury [Recovering/Resolving]
  - Paraesthesia [Recovered/Resolved]
  - Medical device complication [Not Recovered/Not Resolved]

NARRATIVE: CASE EVENT DATE: 20150507
